FAERS Safety Report 9376562 (Version 3)
Quarter: 2013Q3

REPORT INFORMATION
  Report Type: Spontaneous
  Country: US (occurrence: US)
  Receive Date: 20130701
  Receipt Date: 20130821
  Transmission Date: 20140515
  Serious: No
  Sender: FDA-Public Use
  Company Number: US-PFIZER INC-2013190243

PATIENT
  Age: 71 Year
  Sex: Female

DRUGS (1)
  1. SOMAVERT [Suspect]
     Dosage: 15 MG, UNK
     Route: 058
     Dates: start: 20100716, end: 20130524

REACTIONS (1)
  - Neuropathy peripheral [Recovering/Resolving]
